FAERS Safety Report 5255380-4 (Version None)
Quarter: 2007Q1

REPORT INFORMATION
  Report Type: 
  Country: None (occurrence: None)
  Receive Date: 20070228
  Receipt Date: 20070212
  Transmission Date: 20070707
  Serious: Yes (Death, Hospitalization)
  Sender: FDA-Public Use
  Company Number: 2007AD000017

PATIENT
  Age: 9 Year
  Sex: Male

DRUGS (1)
  1. KEFLEX [Suspect]
     Indication: CELLULITIS

REACTIONS (17)
  - ANURIA [None]
  - ARRHYTHMIA [None]
  - BUNDLE BRANCH BLOCK RIGHT [None]
  - CARDIAC ARREST [None]
  - CARDIOMEGALY [None]
  - DEPRESSED LEVEL OF CONSCIOUSNESS [None]
  - DILATATION VENTRICULAR [None]
  - DISSEMINATED INTRAVASCULAR COAGULATION [None]
  - HYPOTENSION [None]
  - LETHARGY [None]
  - MENINGOCOCCAL BACTERAEMIA [None]
  - MITRAL VALVE INCOMPETENCE [None]
  - MYOCARDIAL INFARCTION [None]
  - MYOCARDITIS [None]
  - PETECHIAE [None]
  - SEPTIC SHOCK [None]
  - VOMITING [None]
